FAERS Safety Report 9725273 (Version 1)
Quarter: 2013Q4

REPORT INFORMATION
  Report Type: Spontaneous
  Country: US (occurrence: None)
  Receive Date: 20131202
  Receipt Date: 20131202
  Transmission Date: 20140711
  Serious: No
  Sender: FDA-Public Use
  Company Number: None

PATIENT
  Age: 53 Year
  Sex: Male
  Weight: 72.58 kg

DRUGS (1)
  1. OMEPRAZOLE 20 MG SANDOZ [Suspect]
     Indication: GASTROOESOPHAGEAL REFLUX DISEASE
     Dosage: 1 CAPSULE  ONCE DAILY  TAKEN BY MOUTH
     Route: 048
     Dates: start: 20131030, end: 20131102

REACTIONS (5)
  - Drug ineffective [None]
  - Product quality issue [None]
  - Economic problem [None]
  - Disease complication [None]
  - Product substitution issue [None]
